FAERS Safety Report 12752041 (Version 2)
Quarter: 2016Q3

REPORT INFORMATION
  Report Type: Spontaneous
  Country: US (occurrence: US)
  Receive Date: 20160915
  Receipt Date: 20160915
  Transmission Date: 20161109
  Serious: No
  Sender: FDA-Public Use
  Company Number: US-ALLERGAN-1658806US

PATIENT
  Age: 54 Year
  Sex: Female
  Weight: 52.15 kg

DRUGS (3)
  1. VIBERZI [Suspect]
     Active Substance: ELUXADOLINE
     Indication: IRRITABLE BOWEL SYNDROME
     Dosage: 100 MG, BID
     Route: 048
     Dates: start: 20160525, end: 20160527
  2. IMODIUM [Concomitant]
     Active Substance: LOPERAMIDE HYDROCHLORIDE
     Indication: DIARRHOEA
     Dosage: UNK UNK, PRN
     Route: 048
     Dates: start: 2008
  3. VIBERZI [Suspect]
     Active Substance: ELUXADOLINE
     Indication: IRRITABLE BOWEL SYNDROME
     Dosage: 75 MG, UNK
     Dates: start: 20160607

REACTIONS (8)
  - Inappropriate schedule of drug administration [Unknown]
  - Product selection error [Unknown]
  - Fatigue [Recovering/Resolving]
  - Vomiting [Recovered/Resolved]
  - Constipation [Recovered/Resolved]
  - Diarrhoea [Recovering/Resolving]
  - Somnolence [Unknown]
  - Nausea [Not Recovered/Not Resolved]

NARRATIVE: CASE EVENT DATE: 20160525
